FAERS Safety Report 8613367 (Version 2)
Quarter: 2014Q1

REPORT INFORMATION
  Report Type: Spontaneous
  Country: US (occurrence: None)
  Receive Date: 20120323
  Receipt Date: 20130305
  Transmission Date: 20141002
  Serious: Yes (Other)
  Sender: FDA-Public Use
  Company Number: 163-21880-11123006

PATIENT
  Age: 77 Year
  Sex: Male
  Weight: 88.45 kg

DRUGS (23)
  1. REVLIMID [Suspect]
     Indication: 5Q MINUS SYNDROME
     Route: 048
     Dates: start: 20111130, end: 20111213
  2. VITAMIN D (ERGOCALCIFEROL) [Concomitant]
  3. VITAMINS NOS [Concomitant]
  4. ASPIRIN [Concomitant]
  5. FOLIC ACID [Concomitant]
  6. COLCHICINE [Concomitant]
  7. FINASTERIDE [Concomitant]
  8. XOPENEX HFA (LEVOSALBUTAMOL TARTRATE) [Concomitant]
  9. NATEGLINIDE [Concomitant]
  10. LEVEMIR [Concomitant]
  11. SIMVASTATIN [Concomitant]
  12. METOPROLOL-HCTZ (SELOKEN COMP.) [Concomitant]
  13. AMLODIPINE BESYLATE [Concomitant]
  14. QUINAPRIL-HCTZ (ACUILIX) [Concomitant]
  15. FUROSEMIDE [Concomitant]
  16. TERAZOSIN HYDROCHLORIDE [Concomitant]
  17. KLOR-CON M10 (POTASSIUM CHLORIDE) [Concomitant]
  18. STARLIX (NATEGLINIDE) TABLET [Concomitant]
  19. ZOCOL (FLUCONAZOLE) [Concomitant]
  20. QUINARETIC (GEZOR) [Concomitant]
  21. NORVASC (AMLODIPINE BESILATE) [Concomitant]
  22. FERGON (FERROUS GLUCONATE) [Concomitant]
  23. OMEGA 3 (FISH OIL) [Concomitant]

REACTIONS (3)
  - Swelling face [None]
  - Angioedema [None]
  - Pruritus [None]
